FAERS Safety Report 5964963-5 (Version None)
Quarter: 2008Q4

REPORT INFORMATION
  Report Type: 
  Country: None (occurrence: None)
  Receive Date: 20081125
  Receipt Date: 20081118
  Transmission Date: 20090506
  Serious: Yes (Death, Hospitalization)
  Sender: FDA-Public Use
  Company Number: FR-CELGENEUS-056-CCAZA-08110915

PATIENT
  Sex: Male

DRUGS (3)
  1. VIDAZA [Suspect]
     Dosage: 141MG DAILY
     Route: 058
     Dates: start: 20080711
  2. VIDAZA [Suspect]
     Route: 058
     Dates: start: 20080811
  3. VIDAZA [Suspect]
     Dates: start: 20080911

REACTIONS (5)
  - EAR INFECTION BACTERIAL [None]
  - GENERAL PHYSICAL HEALTH DETERIORATION [None]
  - HYPERTHERMIA [None]
  - INFECTION [None]
  - PSEUDOMONAS INFECTION [None]
